FAERS Safety Report 16165525 (Version 1)
Quarter: 2019Q2

REPORT INFORMATION
  Report Type: Spontaneous
  Country: US (occurrence: US)
  Receive Date: 20190405
  Receipt Date: 20190405
  Transmission Date: 20190711
  Serious: Yes (Other)
  Sender: FDA-Public Use
  Company Number: US-ASTRAZENECA-2019SE49663

PATIENT
  Age: 834 Month
  Sex: Female

DRUGS (13)
  1. METFORMIN [Concomitant]
     Active Substance: METFORMIN HYDROCHLORIDE
  2. ONGLYZA [Suspect]
     Active Substance: SAXAGLIPTIN HYDROCHLORIDE
     Indication: TYPE 2 DIABETES MELLITUS
     Route: 048
     Dates: start: 201007, end: 201508
  3. ASPIRIN. [Concomitant]
     Active Substance: ASPIRIN
  4. LYRICA [Concomitant]
     Active Substance: PREGABALIN
  5. ROSUVASTATIN. [Concomitant]
     Active Substance: ROSUVASTATIN
  6. HUMULIN R [Concomitant]
     Active Substance: INSULIN HUMAN
  7. METOPROLOL. [Concomitant]
     Active Substance: METOPROLOL
  8. LASIX [Concomitant]
     Active Substance: FUROSEMIDE
  9. PREGABALIN. [Concomitant]
     Active Substance: PREGABALIN
  10. GLYBURIDE. [Concomitant]
     Active Substance: GLYBURIDE
  11. VALSARTAN. [Concomitant]
     Active Substance: VALSARTAN
  12. CRESTOR [Concomitant]
     Active Substance: ROSUVASTATIN CALCIUM
  13. IBANDRONATE SODIUM. [Concomitant]
     Active Substance: IBANDRONATE SODIUM

REACTIONS (1)
  - Cardiac failure congestive [Unknown]

NARRATIVE: CASE EVENT DATE: 201502
